FAERS Safety Report 5422445-3 (Version None)
Quarter: 2007Q3

REPORT INFORMATION
  Report Type: 
  Country: None (occurrence: None)
  Receive Date: 20070822
  Receipt Date: 20070809
  Transmission Date: 20080115
  Serious: Yes (Other)
  Sender: FDA-Public Use
  Company Number: US-ELI_LILLY_AND_COMPANY-US200708002185

PATIENT
  Sex: Female

DRUGS (3)
  1. FORTEO [Suspect]
     Indication: OSTEOPOROSIS
     Dosage: UNK, UNK
     Dates: start: 20070727
  2. FORTEO [Suspect]
     Dates: start: 20070801
  3. EVISTA [Suspect]
     Indication: OSTEOPOROSIS
     Dosage: 60 MG, UNK
     Route: 048

REACTIONS (10)
  - BONE FORMATION DECREASED [None]
  - CHRONIC OBSTRUCTIVE PULMONARY DISEASE [None]
  - COUGH [None]
  - DRUG INEFFECTIVE [None]
  - DRUG INTOLERANCE [None]
  - FATIGUE [None]
  - METAL POISONING [None]
  - NOCARDIOSIS [None]
  - OSTEONECROSIS [None]
  - STOMACH DISCOMFORT [None]
